FAERS Safety Report 19081133 (Version 6)
Quarter: 2022Q1

REPORT INFORMATION
  Report Type: Report from Study
  Country: BE (occurrence: BE)
  Receive Date: 20210401
  Receipt Date: 20220302
  Transmission Date: 20220423
  Serious: Yes (Death, Hospitalization, Other)
  Sender: FDA-Public Use
  Company Number: BE-BAYER-2021-060340

PATIENT
  Age: 90 Year
  Sex: Female
  Weight: 72 kg

DRUGS (62)
  1. RIVAROXABAN [Suspect]
     Active Substance: RIVAROXABAN
     Indication: Peripheral arterial occlusive disease
     Dosage: 2.5 MG, BID
     Route: 048
     Dates: start: 20200710, end: 20201230
  2. RIVAROXABAN [Suspect]
     Active Substance: RIVAROXABAN
     Indication: Coronary artery disease
     Dosage: 2.5 MG, BID
     Route: 048
     Dates: start: 20210106, end: 20210207
  3. RIVAROXABAN [Suspect]
     Active Substance: RIVAROXABAN
     Indication: Cardiovascular event prophylaxis
     Dosage: 2.5 MG, BID
     Route: 048
     Dates: start: 20210216, end: 20210228
  4. RIVAROXABAN [Suspect]
     Active Substance: RIVAROXABAN
     Dosage: 2.5 MG, BID
     Route: 048
     Dates: start: 20210311, end: 20210315
  5. RIVAROXABAN [Suspect]
     Active Substance: RIVAROXABAN
     Dosage: 2.5 MG, BID
     Route: 048
     Dates: start: 20210331, end: 20210608
  6. ASPIRIN [Suspect]
     Active Substance: ASPIRIN
     Indication: Peripheral arterial occlusive disease
     Dosage: 100 MG, QD
     Route: 065
     Dates: start: 20200613, end: 20201231
  7. ASPIRIN [Suspect]
     Active Substance: ASPIRIN
     Indication: Coronary artery disease
     Dosage: 80 MG, QD
     Route: 065
     Dates: start: 20210101, end: 20210109
  8. ASPIRIN [Suspect]
     Active Substance: ASPIRIN
     Indication: Cardiovascular event prophylaxis
     Dosage: 100 MG, QD
     Route: 065
     Dates: start: 20210110, end: 20210214
  9. ASPIRIN [Suspect]
     Active Substance: ASPIRIN
     Dosage: 80 MG, QD
     Route: 065
     Dates: start: 20210215, end: 20210315
  10. ASPIRIN [Suspect]
     Active Substance: ASPIRIN
     Dosage: 80 MG, QD
     Route: 065
     Dates: start: 20210323, end: 20210330
  11. ASPIRIN [Suspect]
     Active Substance: ASPIRIN
     Dosage: 100 MG, QD
     Route: 065
     Dates: start: 20210331, end: 20210608
  12. NITROFURANTOIN [Concomitant]
     Active Substance: NITROFURANTOIN
     Dosage: 100 MG, TID
     Dates: start: 20201226, end: 20201230
  13. BUMETANIDE [Concomitant]
     Active Substance: BUMETANIDE
     Dosage: 1 MG OTHER
     Dates: start: 20100505, end: 20200315
  14. BUMETANIDE [Concomitant]
     Active Substance: BUMETANIDE
     Dosage: 1 MG OTHER
     Dates: start: 20200411, end: 20201230
  15. BUMETANIDE [Concomitant]
     Active Substance: BUMETANIDE
     Dosage: 0.5 MG
     Dates: start: 20210101, end: 20210331
  16. BUMETANIDE [Concomitant]
     Active Substance: BUMETANIDE
     Dosage: 2 MG, ONCE
     Route: 042
     Dates: start: 20210305, end: 20210305
  17. BUMETANIDE [Concomitant]
     Active Substance: BUMETANIDE
     Dosage: 0.5 MG
     Dates: start: 20210105, end: 20210301
  18. BUMETANIDE [Concomitant]
     Active Substance: BUMETANIDE
     Dosage: 1 MG, QD
     Dates: start: 20210401
  19. BUMETANIDE [Concomitant]
     Active Substance: BUMETANIDE
     Dosage: 2 MG, QD
     Dates: start: 20200330, end: 20200330
  20. BUMETANIDE [Concomitant]
     Active Substance: BUMETANIDE
     Dosage: 2.5 MG, BID
     Dates: start: 20200401, end: 20200402
  21. BUMETANIDE [Concomitant]
     Active Substance: BUMETANIDE
     Dosage: 2.5 MG, QD
     Dates: start: 20210330, end: 20210330
  22. LISINOPRIL [Concomitant]
     Active Substance: LISINOPRIL
     Dosage: 20 MG, QD
     Dates: start: 20090216, end: 20200314
  23. LISINOPRIL [Concomitant]
     Active Substance: LISINOPRIL
     Dosage: 20 MG, QD
     Dates: start: 20200406, end: 20201231
  24. LISINOPRIL [Concomitant]
     Active Substance: LISINOPRIL
     Dosage: 5 MG, QID
     Dates: start: 20200517, end: 20200517
  25. LISINOPRIL [Concomitant]
     Active Substance: LISINOPRIL
     Dosage: 20 MG, QD
     Dates: start: 20210105, end: 20210214
  26. LISINOPRIL [Concomitant]
     Active Substance: LISINOPRIL
     Dosage: 10 MG, QD
     Dates: start: 20210322
  27. BISOPROLOL [Concomitant]
     Active Substance: BISOPROLOL
     Dosage: 5 MG, QD
     Dates: start: 2009, end: 20201231
  28. BISOPROLOL [Concomitant]
     Active Substance: BISOPROLOL
     Dosage: 5 MG, QD
     Dates: start: 20210105
  29. ROSUVASTATIN [Concomitant]
     Active Substance: ROSUVASTATIN
     Dosage: 20 MG, QD
     Dates: start: 2008, end: 20200413
  30. INSULIN HM ACTRAPID [Concomitant]
     Dosage: 10 IU, QD
     Dates: start: 20201230, end: 20201231
  31. ENOXAPARIN SODIUM [Concomitant]
     Active Substance: ENOXAPARIN SODIUM
     Dosage: 20 MG, QD
     Dates: start: 20210214, end: 20210226
  32. ENOXAPARIN SODIUM [Concomitant]
     Active Substance: ENOXAPARIN SODIUM
     Dosage: 4000 IU, QD
     Dates: start: 20210314, end: 20210331
  33. ENOXAPARIN SODIUM [Concomitant]
     Active Substance: ENOXAPARIN SODIUM
     Dosage: 2000 IU, QD
     Dates: start: 20210305, end: 20210311
  34. ACETAMINOPHEN [Concomitant]
     Active Substance: ACETAMINOPHEN
     Dosage: 1500 MG
     Dates: start: 20210129, end: 20210129
  35. ACETAMINOPHEN [Concomitant]
     Active Substance: ACETAMINOPHEN
     Dosage: 1000 MG, PRN
     Dates: start: 20210214
  36. ACETAMINOPHEN [Concomitant]
     Active Substance: ACETAMINOPHEN
     Dosage: 1 G, PRN
     Dates: start: 20200409, end: 20200409
  37. ACETAMINOPHEN [Concomitant]
     Active Substance: ACETAMINOPHEN
     Dosage: 1 G, PRN
     Dates: start: 20210331
  38. ACETAMINOPHEN [Concomitant]
     Active Substance: ACETAMINOPHEN
     Dosage: 1 G, PRN
     Dates: start: 20200314, end: 20200409
  39. ACETAMINOPHEN [Concomitant]
     Active Substance: ACETAMINOPHEN
     Dosage: 1000 MG, QD
     Dates: start: 20200421, end: 20200421
  40. ACETAMINOPHEN [Concomitant]
     Active Substance: ACETAMINOPHEN
     Dosage: 1000 MG, PRN
     Dates: start: 20200428, end: 20200429
  41. ACETAMINOPHEN [Concomitant]
     Active Substance: ACETAMINOPHEN
     Dosage: 1000 MG, PRN
     Dates: start: 20200525, end: 20200526
  42. ACETAMINOPHEN [Concomitant]
     Active Substance: ACETAMINOPHEN
     Dosage: 1000 MG, PRN
     Dates: start: 20210129, end: 20210130
  43. ACETAMINOPHEN [Concomitant]
     Active Substance: ACETAMINOPHEN
     Dosage: 1000 MG, PRN
     Dates: start: 20210228, end: 20210331
  44. HEPARIN [Concomitant]
     Active Substance: HEPARIN SODIUM
     Dosage: 5000 IU, QD
     Dates: start: 20210331, end: 20210331
  45. MORPHINE [Concomitant]
     Active Substance: MORPHINE
     Dosage: UNK
     Dates: start: 20210408
  46. TEMOCILLIN [Concomitant]
     Active Substance: TEMOCILLIN
     Dosage: 2 G, BID
     Dates: start: 20210209, end: 20210214
  47. TEMOCILLIN [Concomitant]
     Active Substance: TEMOCILLIN
     Dosage: 1 G, BID
     Dates: start: 20210215, end: 20210309
  48. TEMOCILLIN [Concomitant]
     Active Substance: TEMOCILLIN
     Dosage: 1 G, BID
     Dates: start: 20210302, end: 20210302
  49. CIPROFLOXACIN [Concomitant]
     Active Substance: CIPROFLOXACIN
     Dosage: 500 MG, BID
     Dates: start: 20210208, end: 20210208
  50. LIDOCAINE [Concomitant]
     Active Substance: LIDOCAINE
     Dosage: 1 ML, QD
     Dates: start: 20210304, end: 20210304
  51. LIDOCAINE [Concomitant]
     Active Substance: LIDOCAINE
     Dosage: 1 DF, QD
     Dates: start: 20210318, end: 20210318
  52. LINEZOLID [Concomitant]
     Active Substance: LINEZOLID
     Dosage: 600 MG, BID
     Dates: start: 20210225, end: 20210315
  53. MEROPENEM [Concomitant]
     Active Substance: MEROPENEM
     Dosage: 2 G
     Dates: start: 20210312, end: 20210312
  54. MEROPENEM [Concomitant]
     Active Substance: MEROPENEM
     Dosage: 500 MG, TID
     Dates: start: 20210312, end: 20210322
  55. SPIRONOLACTONE [Concomitant]
     Active Substance: SPIRONOLACTONE
     Dosage: 50 MG, QD
     Dates: start: 20200408, end: 20200408
  56. SPIRONOLACTONE [Concomitant]
     Active Substance: SPIRONOLACTONE
     Dosage: 25 MG, QD
     Dates: start: 20200108, end: 20201230
  57. TRAMADOL [Concomitant]
     Active Substance: TRAMADOL
     Dosage: 100 MG, PRN
     Dates: start: 20200331, end: 20200401
  58. TRAMADOL [Concomitant]
     Active Substance: TRAMADOL
     Dosage: 100 MG, PRN
     Dates: start: 20200416, end: 20200417
  59. TRAMADOL [Concomitant]
     Active Substance: TRAMADOL
     Dosage: 100 MG, PRN
     Dates: start: 20200428, end: 20200429
  60. TRAMADOL [Concomitant]
     Active Substance: TRAMADOL
     Dosage: 50 MG, PRN
     Dates: start: 20210305, end: 20210331
  61. AMOXICILLIN [Concomitant]
     Active Substance: AMOXICILLIN
     Dosage: 875 MG, TID
     Dates: start: 20210210, end: 20210214
  62. CLAVULANIC ACID [Concomitant]
     Active Substance: CLAVULANIC ACID
     Dosage: 125 MG, TID
     Dates: start: 20210210, end: 20210214

REACTIONS (10)
  - Death [Fatal]
  - Acute kidney injury [Recovering/Resolving]
  - Cyanosis [Recovered/Resolved with Sequelae]
  - Cystitis bacterial [Recovered/Resolved]
  - Urosepsis [Recovered/Resolved]
  - Haematuria [Recovered/Resolved]
  - Nephrolithiasis [Recovering/Resolving]
  - Hyperkalaemia [Recovered/Resolved]
  - Anaemia [Recovered/Resolved]
  - Pancytopenia [Recovered/Resolved]

NARRATIVE: CASE EVENT DATE: 20210103
